FAERS Safety Report 16933780 (Version 1)
Quarter: 2019Q4

REPORT INFORMATION
  Report Type: Spontaneous
  Country: GB (occurrence: GB)
  Receive Date: 20191018
  Receipt Date: 20191018
  Transmission Date: 20200122
  Serious: Yes (Other)
  Sender: FDA-Public Use
  Company Number: GB-BAXTER-2019BAX020108

PATIENT
  Age: 62 Year
  Sex: Male
  Weight: 80 kg

DRUGS (1)
  1. FLUCONAZOLE 2 MG/ML SOLUTION FOR INFUSION [Suspect]
     Active Substance: FLUCONAZOLE
     Indication: PRODUCT USED FOR UNKNOWN INDICATION
     Route: 065
     Dates: start: 20190923

REACTIONS (4)
  - Polydipsia [Not Recovered/Not Resolved]
  - Type 1 diabetes mellitus [Unknown]
  - Fatigue [Unknown]
  - Polyuria [Unknown]

NARRATIVE: CASE EVENT DATE: 20190923
